FAERS Safety Report 6136395-0 (Version None)
Quarter: 2009Q1

REPORT INFORMATION
  Report Type: 
  Country: None (occurrence: None)
  Receive Date: 20090330
  Receipt Date: 20090324
  Transmission Date: 20090719
  Serious: Yes (Hospitalization)
  Sender: FDA-Public Use
  Company Number: FR-ROCHE-623733

PATIENT
  Age: 89 Year
  Sex: Female

DRUGS (3)
  1. VALIUM [Suspect]
     Indication: DRUG USE FOR UNKNOWN INDICATION
     Route: 048
     Dates: end: 20090301
  2. VASTAREL [Suspect]
     Indication: DRUG USE FOR UNKNOWN INDICATION
     Route: 048
     Dates: end: 20090310
  3. TANAKAN [Concomitant]

REACTIONS (12)
  - DERMABRASION [None]
  - ECCHYMOSIS [None]
  - FALL [None]
  - HAEMATOMA [None]
  - HEART RATE IRREGULAR [None]
  - HUMERUS FRACTURE [None]
  - LOSS OF CONSCIOUSNESS [None]
  - OPEN WOUND [None]
  - PERONEAL NERVE PALSY [None]
  - TOOTH FRACTURE [None]
  - TRAUMATIC BRAIN INJURY [None]
  - UPPER LIMB FRACTURE [None]
